FAERS Safety Report 13443437 (Version 1)
Quarter: 2017Q2

REPORT INFORMATION
  Report Type: Spontaneous
  Country: FR (occurrence: FR)
  Receive Date: 20170414
  Receipt Date: 20170414
  Transmission Date: 20170830
  Serious: Yes (Death)
  Sender: FDA-Public Use
  Company Number: FR-SA-2017SA063323

PATIENT
  Age: 52 Year
  Sex: Female

DRUGS (2)
  1. EPIRUBICIN [Suspect]
     Active Substance: EPIRUBICIN
     Indication: BREAST CANCER
     Dosage: DOSE: 300 MG/M2 (75 MG/M2, 4 IN 1 CYCLE)?; DURATION 4 CYCLES
     Route: 042
     Dates: start: 200110, end: 200112
  2. DOCETAXEL. [Suspect]
     Active Substance: DOCETAXEL
     Indication: BREAST CANCER
     Dosage: DOSE: 300 MG/M2 (75 MG/M2, 4 IN 1 CYCLE)?; DURATION 4 CYCLES
     Route: 042
     Dates: start: 200110, end: 200112

REACTIONS (1)
  - Acute myeloid leukaemia [Fatal]

NARRATIVE: CASE EVENT DATE: 20020227
